FAERS Safety Report 7945420-3 (Version None)
Quarter: 2011Q4

REPORT INFORMATION
  Report Type: 
  Country: None (occurrence: None)
  Receive Date: 20111129
  Receipt Date: 20111115
  Transmission Date: 20120403
  Serious: Yes (Hospitalization)
  Sender: FDA-Public Use
  Company Number: JP-AMGEN-JPNSP2011059200

PATIENT
  Age: 59 Year
  Sex: Female
  Weight: 59 kg

DRUGS (7)
  1. RENAGEL [Suspect]
     Dosage: 500 MG, TID
     Route: 048
     Dates: start: 20110810, end: 20111021
  2. CINACALCET HYDROCHLORIDE [Suspect]
     Indication: HYPERPARATHYROIDISM SECONDARY
     Dosage: 25 MG, QD
     Route: 048
     Dates: start: 20110810, end: 20111021
  3. OLOPATADINE HCL [Concomitant]
     Dosage: 5 MG, QD
     Route: 048
     Dates: start: 20111012, end: 20111021
  4. CINACALCET HYDROCHLORIDE [Suspect]
     Dosage: 25 MG, BID
     Route: 048
     Dates: start: 20110914, end: 20111012
  5. GASMOTIN [Concomitant]
     Dosage: 5 MG, TID
     Route: 048
     Dates: start: 20111014, end: 20111021
  6. ALFAROL [Suspect]
     Dosage: 0.5 MUG, QD
     Route: 048
     Dates: start: 20110810, end: 20111021
  7. FAMOTIDINE [Concomitant]
     Dosage: 10 MG, QD
     Route: 048
     Dates: start: 20111010, end: 20111021

REACTIONS (1)
  - LIVER DISORDER [None]
